FAERS Safety Report 19275357 (Version 1)
Quarter: 2021Q2

REPORT INFORMATION
  Report Type: Spontaneous
  Country: US (occurrence: US)
  Receive Date: 20210519
  Receipt Date: 20210519
  Transmission Date: 20210717
  Serious: Yes (Hospitalization, Other)
  Sender: FDA-Public Use
  Company Number: US-TAKEDA-2021TUS029935

PATIENT
  Sex: Female

DRUGS (1)
  1. MOTEGRITY [Suspect]
     Active Substance: PRUCALOPRIDE SUCCINATE
     Indication: IRRITABLE BOWEL SYNDROME
     Route: 048
     Dates: start: 20210323

REACTIONS (6)
  - Flatulence [Unknown]
  - Chills [Unknown]
  - Muscle spasms [Unknown]
  - Pain [Unknown]
  - Dizziness [Unknown]
  - Abdominal distension [Unknown]
